FAERS Safety Report 10352675 (Version 2)
Quarter: 2015Q3

REPORT INFORMATION
  Report Type: Spontaneous
  Country: PR (occurrence: PR)
  Receive Date: 20140730
  Receipt Date: 20150727
  Transmission Date: 20151125
  Serious: No
  Sender: FDA-Public Use
  Company Number: PR-ABBVIE-14P-131-1244432-00

PATIENT
  Sex: Female

DRUGS (2)
  1. SYNTHROID [Suspect]
     Active Substance: LEVOTHYROXINE SODIUM
     Indication: PRODUCT USED FOR UNKNOWN INDICATION
     Route: 048
  2. SYNTHROID [Suspect]
     Active Substance: LEVOTHYROXINE SODIUM
     Indication: PRODUCT USED FOR UNKNOWN INDICATION
     Dosage: 2.5 50 MCG TABLETS
     Route: 048

REACTIONS (5)
  - Pruritus [Recovered/Resolved]
  - Malaise [Unknown]
  - Reaction to food colouring [Unknown]
  - Asthenia [Not Recovered/Not Resolved]
  - Dermatitis allergic [Recovered/Resolved]
